FAERS Safety Report 10197758 (Version 1)
Quarter: 2014Q2

REPORT INFORMATION
  Report Type: Spontaneous
  Country: PT (occurrence: PT)
  Receive Date: 20140527
  Receipt Date: 20140527
  Transmission Date: 20141212
  Serious: Yes (Other)
  Sender: FDA-Public Use
  Company Number: PT-ACTAVIS-2014-11120

PATIENT
  Age: 41 Year
  Sex: Female

DRUGS (2)
  1. RISPERIDONE (UNKNOWN) [Suspect]
     Indication: MANIA
     Dosage: 2 MG/DAY, UP TITRATED TO 4MG OVER THE NEXT TWO DAYS
     Route: 065
  2. VALPROIC ACID (UNKNOWN) [Interacting]
     Indication: MANIA
     Dosage: 500 MG/DAY, UP TO 1000 MG/DAY
     Route: 065

REACTIONS (2)
  - Toxic encephalopathy [Recovered/Resolved]
  - Drug interaction [Recovered/Resolved]
